FAERS Safety Report 12539395 (Version 1)
Quarter: 2016Q3

REPORT INFORMATION
  Report Type: Spontaneous
  Country: None (occurrence: None)
  Receive Date: 20160707
  Receipt Date: 20160707
  Transmission Date: 20161109
  Serious: No
  Sender: FDA-Public Use
  Company Number: None

PATIENT
  Age: 62 Year
  Sex: Male

DRUGS (4)
  1. METFORMIN [Suspect]
     Active Substance: METFORMIN HYDROCHLORIDE
  2. JANUVIA [Suspect]
     Active Substance: SITAGLIPTIN PHOSPHATE
  3. TANZEUM [Suspect]
     Active Substance: ALBIGLUTIDE
  4. TOUJEO [Suspect]
     Active Substance: INSULIN GLARGINE

REACTIONS (2)
  - Weight decreased [None]
  - Blood glucose fluctuation [None]
